FAERS Safety Report 24894590 (Version 1)
Quarter: 2025Q1

REPORT INFORMATION
  Report Type: Report from Study
  Country: IE (occurrence: IE)
  Receive Date: 20250128
  Receipt Date: 20250128
  Transmission Date: 20250409
  Serious: Yes (Other)
  Sender: SAMSUNG BIOEPIS
  Company Number: IE-SAMSUNG BIOEPIS-SB-2025-02705

PATIENT
  Age: 58 Year
  Sex: Male

DRUGS (3)
  1. IMRALDI [Suspect]
     Active Substance: ADALIMUMAB
     Indication: Arthritis
     Dates: start: 20210308, end: 20241223
  2. IMRALDI [Suspect]
     Active Substance: ADALIMUMAB
     Dates: start: 20250116, end: 20250120
  3. RIBOCICLIB [Concomitant]
     Active Substance: RIBOCICLIB
     Indication: Product used for unknown indication

REACTIONS (3)
  - Neutropenia [Not Recovered/Not Resolved]
  - Drug ineffective [Unknown]
  - Off label use [Unknown]

NARRATIVE: CASE EVENT DATE: 20241223
